FAERS Safety Report 5131142-3 (Version None)
Quarter: 2006Q3

REPORT INFORMATION
  Report Type: 
  Country: None (occurrence: None)
  Receive Date: 20060830
  Receipt Date: 20060731
  Transmission Date: 20061208
  Serious: Yes (Life-Threatening, Other)
  Sender: FDA-Public Use
  Company Number: 200612698BWH

PATIENT
  Age: 18 Year
  Sex: Male

DRUGS (4)
  1. TRASYLOL [Suspect]
     Indication: SPINAL OPERATION
     Dosage: SEE IMAGE
     Route: 042
     Dates: start: 20060426
  2. TRASYLOL [Suspect]
     Indication: SPINAL OPERATION
     Dosage: SEE IMAGE
     Route: 042
     Dates: start: 20060426
  3. TISSEEL KIT [Concomitant]
  4. GENERAL ANESTHESIA [Concomitant]

REACTIONS (5)
  - ANAPHYLACTIC REACTION [None]
  - ERYTHEMA [None]
  - HYPOTENSION [None]
  - OBSTRUCTIVE AIRWAYS DISORDER [None]
  - URTICARIA [None]
